FAERS Safety Report 4815000-7 (Version None)
Quarter: 2005Q4

REPORT INFORMATION
  Report Type: 
  Country: None (occurrence: None)
  Receive Date: 20051026
  Receipt Date: 20051011
  Transmission Date: 20060501
  Serious: Yes (Other)
  Sender: FDA-Public Use
  Company Number: JP_050707044

PATIENT
  Age: 65 Year
  Sex: Female
  Weight: 45 kg

DRUGS (11)
  1. ZYPREXA [Suspect]
     Indication: SCHIZOPHRENIA
     Dosage: 20 MG DAY
     Dates: start: 20050326, end: 20050623
  2. ISALON (ALDIOXA) [Concomitant]
  3. TASMOLIN (BIPERIDEN) [Concomitant]
  4. LEUCON (ADENINE HYDROCHLORIDE) [Concomitant]
  5. DAIACE (L-CYSTEINE ETHYL ESTER, HYDROCHLORIDE) [Concomitant]
  6. ASPARA  K (ASPARTATE POTASSIUM) [Concomitant]
  7. DALMATE (FLURAZEPAM HYDROCHLORIDE) [Concomitant]
  8. MIDODRINE HCL [Concomitant]
  9. ALOSENN [Concomitant]
  10. PURSENNID [Concomitant]
  11. HEMOCURON (TRIBENOSIDE) [Concomitant]

REACTIONS (5)
  - ANTINUCLEAR ANTIBODY POSITIVE [None]
  - CONDITION AGGRAVATED [None]
  - DIET REFUSAL [None]
  - MUSCLE CONTRACTURE [None]
  - NEUROLEPTIC MALIGNANT SYNDROME [None]
